FAERS Safety Report 8520033-3 (Version None)
Quarter: 2012Q3

REPORT INFORMATION
  Report Type: 
  Country: None (occurrence: None)
  Receive Date: 20120719
  Receipt Date: 20120709
  Transmission Date: 20120928
  Serious: No
  Sender: FDA-Public Use
  Company Number: US-PFIZER INC-2012109192

PATIENT
  Sex: Female
  Weight: 83.447 kg

DRUGS (5)
  1. ADVIL [Suspect]
     Dosage: 2 TABLETS, UNK
     Route: 048
  2. ADVIL [Suspect]
     Dosage: UNK
     Route: 048
  3. ADVIL [Suspect]
     Dosage: 2 TABLETS, AS NEEDED
     Route: 048
     Dates: end: 20120503
  4. ADVIL [Suspect]
     Indication: HEADACHE
     Dosage: 2 TABLETS, AS NEEDED
     Route: 048
  5. ADVIL [Suspect]
     Dosage: 200 MG, DAILY
     Route: 048
     Dates: end: 20120101

REACTIONS (8)
  - ACTIVITIES OF DAILY LIVING IMPAIRED [None]
  - DRUG INEFFECTIVE [None]
  - RASH [None]
  - MALAISE [None]
  - TENSION [None]
  - WEIGHT INCREASED [None]
  - DYSPNOEA [None]
  - FEELING ABNORMAL [None]
